FAERS Safety Report 5729582-4 (Version None)
Quarter: 2008Q2

REPORT INFORMATION
  Report Type: 
  Country: None (occurrence: None)
  Receive Date: 20080501
  Receipt Date: 20080416
  Transmission Date: 20081010
  Serious: Yes (Other)
  Sender: FDA-Public Use
  Company Number: MPS1-1000050

PATIENT
  Age: 8 Year
  Sex: Female
  Weight: 18 kg

DRUGS (1)
  1. ALDURAZYME [Suspect]
     Indication: MUCOPOLYSACCHARIDOSIS I
     Dosage: INTRAVENOUS
     Route: 042

REACTIONS (4)
  - ERYTHEMA [None]
  - HYPERTENSION [None]
  - TACHYCARDIA [None]
  - URTICARIA [None]
